FAERS Safety Report 5146889-2 (Version None)
Quarter: 2006Q4

REPORT INFORMATION
  Report Type: 
  Country: None (occurrence: None)
  Receive Date: 20061109
  Receipt Date: 20061102
  Transmission Date: 20070319
  Serious: Yes (Hospitalization)
  Sender: FDA-Public Use
  Company Number: PT-GLAXOSMITHKLINE-B0445752A

PATIENT
  Age: 39 Year
  Sex: Female

DRUGS (1)
  1. CLAVAMOX [Suspect]
     Indication: TONSILLITIS
     Route: 048
     Dates: end: 20040401

REACTIONS (2)
  - PRURITUS GENERALISED [None]
  - URTICARIA [None]
